FAERS Safety Report 16065547 (Version 1)
Quarter: 2019Q1

REPORT INFORMATION
  Report Type: Spontaneous
  Country: CA (occurrence: CA)
  Receive Date: 20190313
  Receipt Date: 20190313
  Transmission Date: 20190418
  Serious: Yes (Death)
  Sender: FDA-Public Use
  Company Number: CA-JNJFOC-20190306360

PATIENT
  Age: 40 Year
  Sex: Male

DRUGS (2)
  1. PEGETRON [Suspect]
     Active Substance: PEGINTERFERON ALFA-2B\RIBAVIRIN
     Indication: PRODUCT USED FOR UNKNOWN INDICATION
     Dosage: THERAPY DURATION: 32.0 DAY(S)
     Route: 065
  2. TYLENOL EXTRA STRENGTH [Suspect]
     Active Substance: ACETAMINOPHEN
     Indication: PRODUCT USED FOR UNKNOWN INDICATION
     Dosage: THERAPY DURATION: 7.0 DAY(S)
     Route: 065

REACTIONS (12)
  - Aspartate aminotransferase increased [Fatal]
  - Alanine aminotransferase increased [Fatal]
  - Nausea [Fatal]
  - Myocardial infarction [Fatal]
  - Hepatorenal syndrome [Fatal]
  - Jaundice [Fatal]
  - Atrial fibrillation [Fatal]
  - Blood alkaline phosphatase increased [Fatal]
  - Blood bilirubin increased [Fatal]
  - Hepatic enzyme increased [Fatal]
  - Hepatic failure [Fatal]
  - Hepatitis fulminant [Fatal]
